FAERS Safety Report 10012612 (Version 1)
Quarter: 2014Q1

REPORT INFORMATION
  Report Type: Spontaneous
  Country: GB (occurrence: GB)
  Receive Date: 20140314
  Receipt Date: 20140314
  Transmission Date: 20141002
  Serious: Yes (Other)
  Sender: FDA-Public Use
  Company Number: GB-JNJFOC-20140303783

PATIENT
  Age: 21 Year
  Sex: Female
  Weight: 84 kg

DRUGS (1)
  1. CONCERTA XL [Suspect]
     Indication: PRODUCT USED FOR UNKNOWN INDICATION
     Route: 048

REACTIONS (2)
  - Anxiety [Unknown]
  - Panic disorder [Unknown]
